FAERS Safety Report 6181177-7 (Version None)
Quarter: 2009Q2

REPORT INFORMATION
  Report Type: 
  Country: None (occurrence: None)
  Receive Date: 20090506
  Receipt Date: 20090424
  Transmission Date: 20091009
  Serious: Yes (Death)
  Sender: FDA-Public Use
  Company Number: PE-MEDIMMUNE-MEDI-0008336

PATIENT
  Sex: Male

DRUGS (6)
  1. SYNAGIS [Suspect]
     Indication: ANTIVIRAL PROPHYLAXIS
     Route: 030
     Dates: start: 20090213, end: 20090316
  2. SYNAGIS [Suspect]
     Route: 030
     Dates: start: 20090213
  3. SALBUTAMOL [Concomitant]
  4. BECLOMETASONE [Concomitant]
  5. SPIRONOLACTONE [Concomitant]
  6. HYDROCHLOROTHIAZIDE [Concomitant]

REACTIONS (2)
  - APNOEA [None]
  - CYANOSIS [None]
